FAERS Safety Report 21339934 (Version 1)
Quarter: 2022Q3

REPORT INFORMATION
  Report Type: Spontaneous
  Country: HU (occurrence: HU)
  Receive Date: 20220915
  Receipt Date: 20220915
  Transmission Date: 20221027
  Serious: Yes (Other)
  Sender: FDA-Public Use
  Company Number: HU-BAYER-2022P014576

PATIENT
  Age: 70 Year
  Sex: Female

DRUGS (1)
  1. XARELTO [Suspect]
     Active Substance: RIVAROXABAN
     Indication: Product used for unknown indication
     Dosage: UNK
     Route: 048

REACTIONS (4)
  - Basal cell carcinoma [Unknown]
  - General physical health deterioration [Unknown]
  - Arterial occlusive disease [Unknown]
  - Mobility decreased [Unknown]
